FAERS Safety Report 7159894-1 (Version None)
Quarter: 2010Q4

REPORT INFORMATION
  Report Type: 
  Country: None (occurrence: None)
  Receive Date: 20101214
  Receipt Date: 20101201
  Transmission Date: 20110411
  Serious: Yes (Hospitalization)
  Sender: FDA-Public Use
  Company Number: AU-ELI_LILLY_AND_COMPANY-AU201012001050

PATIENT
  Sex: Male

DRUGS (16)
  1. GEMCITABINE HCL [Suspect]
     Indication: PANCREATIC CARCINOMA
     Dosage: 1000 MG/M2, UNK
     Dates: start: 20100825
  2. PACLITAXEL [Suspect]
     Indication: PANCREATIC CARCINOMA
     Dosage: 125 MG/M2, WEEKLY (1/W)
     Dates: start: 20100825
  3. CLEXANE [Concomitant]
     Indication: PROPHYLAXIS
     Dosage: UNK, UNK
     Route: 058
     Dates: start: 20020101
  4. ZOCOR [Concomitant]
     Indication: PROPHYLAXIS
     Route: 048
     Dates: start: 20020101
  5. PARACETAMOL [Concomitant]
     Indication: PROPHYLAXIS
     Route: 048
     Dates: start: 20020101
  6. CREON [Concomitant]
     Indication: PROPHYLAXIS
     Route: 048
     Dates: start: 20100601
  7. MOVICOL /01625101/ [Concomitant]
     Indication: PROPHYLAXIS
     Route: 048
     Dates: start: 20100601
  8. GRANISETRON HCL [Concomitant]
     Indication: PROPHYLAXIS
     Route: 042
     Dates: start: 20100825
  9. GRANISETRON HCL [Concomitant]
     Route: 048
     Dates: start: 20100826
  10. ASPIRIN [Concomitant]
     Indication: PROPHYLAXIS
     Dosage: UNK, UNK
     Route: 048
     Dates: start: 20100701
  11. ESOMEPRAZOLE MAGNESIUM [Concomitant]
     Indication: VOMITING
     Route: 048
     Dates: start: 20060101
  12. FENTANYL [Concomitant]
     Indication: ABDOMINAL PAIN
     Route: 061
     Dates: start: 20100911
  13. DEXAMETHASONE [Concomitant]
     Indication: PROPHYLAXIS
     Route: 048
     Dates: start: 20100911
  14. METOCLOPRAMIDE [Concomitant]
     Indication: PROPHYLAXIS OF NAUSEA AND VOMITING
     Dates: start: 20100909
  15. GABAPENTIN [Concomitant]
     Indication: PAIN
     Route: 048
     Dates: start: 20100801
  16. MORPHINE HYDROCHLORIDE [Concomitant]
     Indication: PAIN
     Route: 048
     Dates: start: 20100911

REACTIONS (1)
  - DEHYDRATION [None]
